FAERS Safety Report 14693185 (Version 1)
Quarter: 2018Q1

REPORT INFORMATION
  Report Type: Spontaneous
  Country: US (occurrence: US)
  Receive Date: 20180329
  Receipt Date: 20180329
  Transmission Date: 20180509
  Serious: No
  Sender: FDA-Public Use
  Company Number: US-JNJFOC-20180313508

PATIENT
  Sex: Male

DRUGS (13)
  1. DELTASON [Concomitant]
     Active Substance: PREDNISONE
     Route: 065
  2. TOUJEO [Concomitant]
     Active Substance: INSULIN GLARGINE
     Dosage: 300 UNITS/ML
     Route: 065
  3. ZYTIGA [Suspect]
     Active Substance: ABIRATERONE ACETATE
     Indication: PROSTATE CANCER
     Route: 048
  4. ASPIRIN. [Concomitant]
     Active Substance: ASPIRIN
     Route: 065
  5. PRINIVIL [Concomitant]
     Active Substance: LISINOPRIL
     Route: 065
  6. GLUCOPHAGE [Concomitant]
     Active Substance: METFORMIN HYDROCHLORIDE
     Route: 065
  7. AMARYL [Concomitant]
     Active Substance: GLIMEPIRIDE
     Route: 065
  8. ONGLYZA [Concomitant]
     Active Substance: SAXAGLIPTIN HYDROCHLORIDE
     Route: 065
  9. ZESTRIL [Concomitant]
     Active Substance: LISINOPRIL
     Route: 065
  10. CRESTOR [Concomitant]
     Active Substance: ROSUVASTATIN CALCIUM
     Route: 065
  11. PROSCAR [Concomitant]
     Active Substance: FINASTERIDE
     Route: 065
  12. TRADJENTA [Concomitant]
     Active Substance: LINAGLIPTIN
     Route: 065
  13. ERGOCALCIFEROL. [Concomitant]
     Active Substance: ERGOCALCIFEROL
     Dosage: 50,000 UNITS
     Route: 065

REACTIONS (1)
  - Urinary tract disorder [Unknown]
